FAERS Safety Report 10495585 (Version 1)
Quarter: 2014Q3

REPORT INFORMATION
  Report Type: Spontaneous
  Country: US (occurrence: None)
  Receive Date: 20140815
  Receipt Date: 20140815
  Transmission Date: 20150326
  Serious: Yes (Other)
  Sender: FDA-Public Use
  Company Number: ADR-2013-01979

PATIENT
  Sex: Female

DRUGS (1)
  1. LIORESAL [Suspect]
     Active Substance: BACLOFEN
     Indication: MUSCLE SPASTICITY
     Dosage: 700

REACTIONS (7)
  - Pruritus [None]
  - Rash [None]
  - Blood pressure increased [None]
  - Pyrexia [None]
  - Muscle contractions involuntary [None]
  - No therapeutic response [None]
  - Drug withdrawal syndrome [None]
